FAERS Safety Report 4623847-5 (Version None)
Quarter: 2005Q1

REPORT INFORMATION
  Report Type: 
  Country: None (occurrence: None)
  Receive Date: 20050331
  Receipt Date: 20050325
  Transmission Date: 20050727
  Serious: Yes (Hospitalization)
  Sender: FDA-Public Use
  Company Number: 200511110FR

PATIENT
  Age: 78 Year
  Sex: Male

DRUGS (4)
  1. FLAGYL [Suspect]
     Route: 048
     Dates: start: 20050308, end: 20050310
  2. ROCEPHIN [Suspect]
     Route: 042
     Dates: start: 20050306, end: 20050310
  3. RIVOTRIL [Concomitant]
     Route: 048
  4. TRILEPTAL [Concomitant]
     Route: 048

REACTIONS (1)
  - LEUKOPENIA [None]
